FAERS Safety Report 13708127 (Version 1)
Quarter: 2017Q2

REPORT INFORMATION
  Report Type: Spontaneous
  Country: US (occurrence: US)
  Receive Date: 20170630
  Receipt Date: 20170630
  Transmission Date: 20170830
  Serious: No
  Sender: FDA-Public Use
  Company Number: US-PFIZER INC-2017283179

PATIENT
  Sex: Female

DRUGS (2)
  1. CLINDAMYCIN HCL [Suspect]
     Active Substance: CLINDAMYCIN HYDROCHLORIDE
  2. AMOXICILLIN. [Suspect]
     Active Substance: AMOXICILLIN

REACTIONS (3)
  - Vomiting [Unknown]
  - Drug hypersensitivity [Unknown]
  - Rash [Unknown]
